FAERS Safety Report 9393750 (Version 1)
Quarter: 2013Q3

REPORT INFORMATION
  Report Type: Spontaneous
  Country: GB (occurrence: GB)
  Receive Date: 20130710
  Receipt Date: 20130710
  Transmission Date: 20140515
  Serious: Yes (Other)
  Sender: FDA-Public Use
  Company Number: GB-B.I. PHARMACEUTICALS,INC./RIDGEFIELD-2013-UK-01367UK

PATIENT
  Age: 83 Year
  Sex: Female

DRUGS (4)
  1. PRADAXA [Suspect]
  2. ALLOPURINOL [Concomitant]
  3. CEFUROXIME SODIUM [Concomitant]
  4. DIGOXIN [Concomitant]

REACTIONS (2)
  - Gastrooesophageal reflux disease [Unknown]
  - Cough [Unknown]
